FAERS Safety Report 10128502 (Version 2)
Quarter: 2014Q2

REPORT INFORMATION
  Report Type: Spontaneous
  Country: BR (occurrence: BR)
  Receive Date: 20140428
  Receipt Date: 20140618
  Transmission Date: 20141212
  Serious: Yes (Other)
  Sender: FDA-Public Use
  Company Number: BR-RANBAXY-2014R5-80525

PATIENT
  Age: 6 Year
  Sex: Female
  Weight: 18.5 kg

DRUGS (1)
  1. CEFUROXIME AXETIL [Suspect]
     Indication: URINARY TRACT INFECTION
     Dosage: 6 ML, BID
     Route: 048
     Dates: start: 20140414, end: 20140414

REACTIONS (3)
  - Product taste abnormal [Unknown]
  - Throat irritation [Recovered/Resolved]
  - Suffocation feeling [Recovered/Resolved]
